FAERS Safety Report 5392099-3 (Version None)
Quarter: 2007Q3

REPORT INFORMATION
  Report Type: 
  Country: None (occurrence: None)
  Receive Date: 20070720
  Receipt Date: 20070713
  Transmission Date: 20080115
  Serious: Yes (Hospitalization)
  Sender: FDA-Public Use
  Company Number: HQWYE876802JUL07

PATIENT
  Age: 66 Year
  Sex: Male

DRUGS (6)
  1. HYPEN [Suspect]
     Indication: BACK PAIN
     Dosage: UNKNOWN
     Route: 048
     Dates: start: 20070615
  2. REBAMIPIDE [Concomitant]
  3. TICLOPIDINE HYDROCHLORIDE [Concomitant]
  4. SIMVASTATIN [Concomitant]
  5. IMIDAPRIL HYDROCHLORIDE [Concomitant]
  6. ACETYLSALICYLIC ACID SRT [Concomitant]

REACTIONS (1)
  - COLITIS ULCERATIVE [None]
